FAERS Safety Report 24137744 (Version 1)
Quarter: 2024Q3

REPORT INFORMATION
  Report Type: Spontaneous
  Country: CN (occurrence: CN)
  Receive Date: 20240725
  Receipt Date: 20240725
  Transmission Date: 20241016
  Serious: Yes (Hospitalization)
  Sender: FERRING
  Company Number: CN-FERRINGPH-2024FE04026

PATIENT

DRUGS (2)
  1. FIRMAGON [Suspect]
     Active Substance: DEGARELIX ACETATE
     Indication: Prostate cancer
     Dosage: 80 MG, MONTHLY
     Route: 065
     Dates: start: 202404, end: 2024
  2. FIRMAGON [Suspect]
     Active Substance: DEGARELIX ACETATE
     Dosage: 240 MG
     Route: 065
     Dates: start: 202403, end: 202403

REACTIONS (1)
  - Ketosis [Not Recovered/Not Resolved]

NARRATIVE: CASE EVENT DATE: 20240101
